FAERS Safety Report 14085096 (Version 1)
Quarter: 2017Q4

REPORT INFORMATION
  Report Type: Spontaneous
  Country: UA (occurrence: UA)
  Receive Date: 20171013
  Receipt Date: 20171013
  Transmission Date: 20180321
  Serious: Yes (Life-Threatening, Other)
  Sender: FDA-Public Use
  Company Number: UA-MACLEODS PHARMACEUTICALS US LTD-MAC2017006187

PATIENT

DRUGS (9)
  1. TARGOCID [Suspect]
     Active Substance: TEICOPLANIN
     Indication: DERMATOMYOSITIS
     Dosage: UNK
     Route: 065
  2. CYCLOPHOSPHAMIDE. [Suspect]
     Active Substance: CYCLOPHOSPHAMIDE
     Indication: DERMATOMYOSITIS
     Dosage: UNK
     Route: 065
  3. IMMUNOGLOBULINS [Suspect]
     Active Substance: IMMUNE GLOBULIN NOS
     Indication: DERMATOMYOSITIS
     Dosage: UNK
     Route: 042
  4. RITUXIMAB. [Concomitant]
     Active Substance: RITUXIMAB
     Indication: OFF LABEL USE
     Dosage: 400 MG, UNK
     Route: 065
  5. SILDENAFIL. [Suspect]
     Active Substance: SILDENAFIL
     Indication: DERMATOMYOSITIS
     Dosage: UNK
     Route: 065
  6. CIPROFLOXACIN. [Suspect]
     Active Substance: CIPROFLOXACIN
     Indication: DERMATOMYOSITIS
     Dosage: UNK
     Route: 065
  7. VANCOMYCIN [Suspect]
     Active Substance: VANCOMYCIN
     Indication: DERMATOMYOSITIS
     Dosage: UNK
     Route: 065
  8. VFEND [Suspect]
     Active Substance: VORICONAZOLE
     Indication: DERMATOMYOSITIS
     Dosage: UNK
     Route: 065
  9. AZATHIOPRINE. [Concomitant]
     Active Substance: AZATHIOPRINE
     Indication: DERMATOMYOSITIS
     Dosage: UNK
     Route: 065

REACTIONS (1)
  - Drug ineffective [Unknown]
